FAERS Safety Report 9243036 (Version 1)
Quarter: 2013Q2

REPORT INFORMATION
  Report Type: Spontaneous
  Country: BR (occurrence: BR)
  Receive Date: 20130419
  Receipt Date: 20130419
  Transmission Date: 20140414
  Serious: Yes (Hospitalization)
  Sender: FDA-Public Use
  Company Number: BR-ASTRAZENECA-2013SE25151

PATIENT
  Age: 23061 Day
  Sex: Male
  Weight: 85 kg

DRUGS (2)
  1. CRESTOR [Suspect]
     Dosage: DAILY
     Route: 048
     Dates: start: 201302, end: 20130325
  2. ASPIRIN PREVENT [Concomitant]
     Dosage: DAILY
     Dates: start: 2012

REACTIONS (2)
  - Myocardial infarction [Recovered/Resolved]
  - Pain in extremity [Recovered/Resolved]
